FAERS Safety Report 8916363 (Version 1)
Quarter: 2012Q4

REPORT INFORMATION
  Report Type: 
  Country: CA (occurrence: CA)
  Receive Date: 20121120
  Receipt Date: 20121120
  Transmission Date: 20130627
  Serious: Yes (Other)
  Sender: FDA-Public Use
  Company Number: CA-SANOFI-AVENTIS-2012SA084084

PATIENT
  Age: 68 Year
  Sex: Female
  Weight: 67 kg

DRUGS (18)
  1. PLAVIX [Suspect]
     Route: 065
     Dates: end: 20121020
  2. ORENCIA [Suspect]
     Indication: RHEUMATOID ARTHRITIS
     Dosage: 4 weeks
     Route: 042
     Dates: start: 20111210
  3. NIFEDIPINE [Concomitant]
     Route: 048
  4. SYNTHROID [Concomitant]
  5. FERROUS FUMARATE [Concomitant]
  6. DOMPERIDONE [Concomitant]
  7. PREDNISONE [Concomitant]
  8. ALL OTHER THERAPEUTIC PRODUCTS [Concomitant]
  9. PANTOPRAZOLE [Concomitant]
  10. ASA [Concomitant]
  11. VITAMIN D [Concomitant]
  12. TYLENOL ARTHRITIS [Concomitant]
  13. FOLIC ACID [Concomitant]
     Dosage: 5 times a day.
  14. ATORVASTATIN [Concomitant]
  15. BISOPROLOL [Concomitant]
  16. MULTIVITAMINS [Concomitant]
  17. ETIDRONATE DISODIUM [Concomitant]
  18. METHOTREXATE [Concomitant]

REACTIONS (2)
  - Atrial fibrillation [Recovered/Resolved]
  - Palpitations [Recovered/Resolved]
